FAERS Safety Report 23479433 (Version 5)
Quarter: 2024Q2

REPORT INFORMATION
  Report Type: Spontaneous
  Country: CA (occurrence: CA)
  Receive Date: 20240205
  Receipt Date: 20240601
  Transmission Date: 20240716
  Serious: Yes (Other)
  Sender: FDA-Public Use
  Company Number: CA-CELLTRION INC.-2022CA009626

PATIENT

DRUGS (17)
  1. INFLECTRA [Suspect]
     Active Substance: INFLIXIMAB-DYYB
     Indication: Colitis ulcerative
     Dosage: 10MG/KG ON 02MAY, 09MAY, 23MAY, THEN WEEK 7. 5MG/KG Q8 WEEK THEREAFTER
     Route: 042
     Dates: start: 20220502
  2. INFLECTRA [Suspect]
     Active Substance: INFLIXIMAB-DYYB
     Dosage: 10 MG/KG ON 02MAY, 09MAY, 23MAY, THEN WEEK 7. 5MG/KG Q8 WEEK THEREAFTER
     Route: 042
     Dates: start: 20220509
  3. INFLECTRA [Suspect]
     Active Substance: INFLIXIMAB-DYYB
     Dosage: 10 MG/KG ON 02MAY, 09MAY, 23MAY, THEN WEEK 7. 5MG/KG Q8 WEEK THEREAFTER
     Route: 042
     Dates: start: 20220527
  4. INFLECTRA [Suspect]
     Active Substance: INFLIXIMAB-DYYB
     Dosage: 10 MG/KG
     Route: 042
     Dates: start: 20220627
  5. INFLECTRA [Suspect]
     Active Substance: INFLIXIMAB-DYYB
     Dosage: 5 MG/KG
     Route: 042
     Dates: start: 20220822, end: 20220822
  6. INFLECTRA [Suspect]
     Active Substance: INFLIXIMAB-DYYB
     Dosage: 5 MG/KG
     Route: 042
     Dates: start: 20221018
  7. INFLECTRA [Suspect]
     Active Substance: INFLIXIMAB-DYYB
     Dosage: 5 MG/KG
     Route: 042
     Dates: start: 20230202
  8. INFLECTRA [Suspect]
     Active Substance: INFLIXIMAB-DYYB
     Dosage: 300 MG (5 MG/KG), AFTER 9 WEEKS AND 5 DAYS (PRESCRIBED EVERY 8 WEEKS)
     Route: 042
     Dates: start: 20230411
  9. INFLECTRA [Suspect]
     Active Substance: INFLIXIMAB-DYYB
     Dosage: 300 MG (5 MG/KG), EVERY 8 WEEKS
     Route: 042
     Dates: start: 20230608
  10. INFLECTRA [Suspect]
     Active Substance: INFLIXIMAB-DYYB
     Dosage: 320 MG, AFTER 9 WEEKS AND 4 DAYS
     Route: 042
     Dates: start: 20230814
  11. INFLECTRA [Suspect]
     Active Substance: INFLIXIMAB-DYYB
     Dosage: 320 MG, AFTER 9 WEEKS AND 4 DAYS
     Route: 042
     Dates: start: 20230814
  12. INFLECTRA [Suspect]
     Active Substance: INFLIXIMAB-DYYB
     Dosage: 330 MG, AFTER 8 WEEKS AND 3 DAYS
     Route: 042
     Dates: start: 20231012
  13. INFLECTRA [Suspect]
     Active Substance: INFLIXIMAB-DYYB
     Dosage: 10MG/KG, AFTER 7 WEEKS AND 1 DAY (ON 02MAY, 09MAY, 23MAY, THEN WEEK 7. 5MG/KG Q8 WEEK THEREAFTER)
     Route: 042
     Dates: start: 20231201
  14. INFLECTRA [Suspect]
     Active Substance: INFLIXIMAB-DYYB
     Dosage: 5 MG/KG (340MG), AFTER 3 WEEKS 6 DAYS (PRESCRIBE EVERY 4 WEEKS)
     Route: 042
     Dates: start: 20231228
  15. INFLECTRA [Suspect]
     Active Substance: INFLIXIMAB-DYYB
     Dosage: 325 MG (5MG/KG), EVERY 4 WEEKS
     Route: 042
     Dates: start: 20240125
  16. INFLECTRA [Suspect]
     Active Substance: INFLIXIMAB-DYYB
     Dosage: 320 MG, AFTER 4 WEEKS
     Route: 042
     Dates: start: 20240223
  17. PREDNISONE [Concomitant]
     Active Substance: PREDNISONE
     Dosage: 1 DF

REACTIONS (14)
  - Cough [Recovered/Resolved]
  - Pruritus [Recovered/Resolved]
  - Oral disorder [Recovered/Resolved]
  - Throat irritation [Recovered/Resolved]
  - Pain in jaw [Recovered/Resolved]
  - Drug specific antibody present [Unknown]
  - Muscle spasms [Not Recovered/Not Resolved]
  - Condition aggravated [Recovered/Resolved]
  - Fatigue [Not Recovered/Not Resolved]
  - Off label use [Unknown]
  - Off label use [Unknown]
  - Off label use [Unknown]
  - Intentional product use issue [Unknown]
  - Inappropriate schedule of product administration [Unknown]

NARRATIVE: CASE EVENT DATE: 20220501
